FAERS Safety Report 25177701 (Version 1)
Quarter: 2025Q2

REPORT INFORMATION
  Report Type: Spontaneous
  Country: CN (occurrence: CN)
  Receive Date: 20250409
  Receipt Date: 20250409
  Transmission Date: 20250717
  Serious: Yes (Other)
  Sender: B BRAUN
  Company Number: CN-B.Braun Medical Inc.-2174489

PATIENT
  Age: 57 Year
  Sex: Female
  Weight: 59 kg

DRUGS (1)
  1. NUTRILIPID I.V. FAT EMULSION [Suspect]
     Active Substance: SOYBEAN OIL
     Indication: Symptomatic treatment
     Dates: start: 20250306, end: 20250306

REACTIONS (2)
  - Asphyxia [Recovered/Resolved]
  - Pyrexia [Recovered/Resolved]
